FAERS Safety Report 8974421 (Version 1)
Quarter: 2012Q4

REPORT INFORMATION
  Report Type: 
  Country: JP (occurrence: JP)
  Receive Date: 20121220
  Receipt Date: 20121220
  Transmission Date: 20130627
  Serious: Yes (Other)
  Sender: FDA-Public Use
  Company Number: JP-ASTELLAS-2012JP011467

PATIENT
  Age: 12 Year
  Sex: Male

DRUGS (1)
  1. PROGRAF [Suspect]
     Indication: BONE MARROW TRANSPLANT
     Dosage: 0.4 mg, bid
     Route: 048
     Dates: start: 20121115

REACTIONS (3)
  - Drug ineffective [Unknown]
  - Graft versus host disease [Unknown]
  - Paraesthesia [Recovered/Resolved]
